FAERS Safety Report 4741710-6 (Version None)
Quarter: 2005Q3

REPORT INFORMATION
  Report Type: 
  Country: None (occurrence: None)
  Receive Date: 20050810
  Receipt Date: 20050803
  Transmission Date: 20060218
  Serious: Yes (Hospitalization)
  Sender: FDA-Public Use
  Company Number: FR-MERCK-0508FRA00006

PATIENT
  Age: 73 Year
  Sex: Male
  Weight: 89 kg

DRUGS (11)
  1. ZOCOR [Suspect]
     Indication: ISCHAEMIC CARDIOMYOPATHY
     Route: 048
     Dates: end: 20050703
  2. ACEBUTOLOL [Suspect]
     Indication: ISCHAEMIC CARDIOMYOPATHY
     Route: 048
     Dates: end: 20050703
  3. DILTIAZEM HYDROCHLORIDE [Suspect]
     Indication: ISCHAEMIC CARDIOMYOPATHY
     Route: 048
     Dates: end: 20050626
  4. DILTIAZEM HYDROCHLORIDE [Suspect]
     Route: 048
     Dates: start: 20050701
  5. ALLOPURINOL [Suspect]
     Route: 048
     Dates: end: 20050703
  6. METFORMIN [Suspect]
     Indication: DIABETES MELLITUS
     Route: 048
     Dates: end: 20050628
  7. RAMIPRIL [Suspect]
     Indication: ISCHAEMIC CARDIOMYOPATHY
     Route: 048
     Dates: end: 20050701
  8. CLOPIDOGREL BISULFATE [Suspect]
     Indication: CORONARY ARTERY DISEASE
     Route: 048
     Dates: end: 20050703
  9. ACEPROMAZINE AND ACEPROMETAZINE AND CLORAZEPATE DIPOTASSIUM [Suspect]
     Route: 048
     Dates: end: 20050703
  10. ACETAMINOPHEN [Suspect]
     Route: 048
     Dates: end: 20050703
  11. PENTOXIFYLLINE [Suspect]
     Route: 065
     Dates: end: 20050703

REACTIONS (2)
  - PULMONARY FIBROSIS [None]
  - RESPIRATORY DISORDER [None]
